FAERS Safety Report 8818520 (Version 1)
Quarter: 2012Q4

REPORT INFORMATION
  Report Type: Spontaneous
  Country: US (occurrence: None)
  Receive Date: 20121003
  Receipt Date: 20121003
  Transmission Date: 20130627
  Serious: Yes (Disabling)
  Sender: FDA-Public Use
  Company Number: CIO08019332

PATIENT
  Sex: Female

DRUGS (1)
  1. CREST-PRO-HEALTH NIGHT TOOTHPASTE, CLEAN NIGHT MINT FLAVOR (SODIUM POLYPHOSPHATE 13%, STANNOUS FLUORIDE 0.454%, ZINC LACTATE DIHYDRATE 2.5 %) PASTE, 1 APPLIC [Suspect]
     Route: 048
     Dates: start: 20081117, end: 20081117

REACTIONS (7)
  - Nerve injury [None]
  - Multiple injuries [None]
  - Blister [None]
  - Chemical injury [None]
  - Stomatitis [None]
  - Swelling face [None]
  - Application site burn [None]
